FAERS Safety Report 13925399 (Version 1)
Quarter: 2017Q3

REPORT INFORMATION
  Report Type: Report from Study
  Country: GB (occurrence: GB)
  Receive Date: 20170831
  Receipt Date: 20170831
  Transmission Date: 20171127
  Serious: Yes (Hospitalization)
  Sender: FDA-Public Use
  Company Number: GB-JNJFOC-20170823145

PATIENT
  Age: 48 Year
  Sex: Male

DRUGS (17)
  1. ESCITALOPRAM [Concomitant]
     Active Substance: ESCITALOPRAM OXALATE
     Route: 065
     Dates: start: 20000701
  2. FUROSEMIDE. [Concomitant]
     Active Substance: FUROSEMIDE
     Route: 065
     Dates: start: 20110817
  3. ASPIRIN. [Concomitant]
     Active Substance: ASPIRIN
     Route: 065
     Dates: start: 20110817
  4. FLUVASTATIN [Concomitant]
     Active Substance: FLUVASTATIN SODIUM
     Route: 065
     Dates: start: 20070701
  5. AMLODIPINE [Concomitant]
     Active Substance: AMLODIPINE BESYLATE
     Route: 065
     Dates: start: 20110817
  6. STELARA [Suspect]
     Active Substance: USTEKINUMAB
     Indication: PSORIASIS
     Route: 058
     Dates: start: 20150113, end: 20160517
  7. HYDROXYZINE [Concomitant]
     Active Substance: HYDROXYZINE HYDROCHLORIDE
     Route: 065
  8. NAPROXEN. [Concomitant]
     Active Substance: NAPROXEN
     Route: 065
     Dates: start: 20110817
  9. DIAZEPAM. [Concomitant]
     Active Substance: DIAZEPAM
     Route: 065
     Dates: start: 20161206
  10. NEBIVOLOL. [Concomitant]
     Active Substance: NEBIVOLOL
     Route: 065
  11. OMEPRAZOLE. [Concomitant]
     Active Substance: OMEPRAZOLE
     Route: 065
     Dates: start: 20110817
  12. NEORAL [Concomitant]
     Active Substance: CYCLOSPORINE
     Route: 065
     Dates: start: 20170207
  13. PARACETAMOL [Concomitant]
     Active Substance: ACETAMINOPHEN
     Route: 065
     Dates: start: 20110811
  14. RAMIPRIL. [Concomitant]
     Active Substance: RAMIPRIL
     Route: 065
     Dates: start: 20110817
  15. NEORAL [Concomitant]
     Active Substance: CYCLOSPORINE
     Route: 065
     Dates: start: 20161220, end: 20170201
  16. NEORAL [Concomitant]
     Active Substance: CYCLOSPORINE
     Route: 065
     Dates: start: 20130311, end: 20160311
  17. APREMILAST [Concomitant]
     Active Substance: APREMILAST
     Route: 065
     Dates: start: 20161025, end: 20161206

REACTIONS (3)
  - Bile duct obstruction [Unknown]
  - Cholangitis [Recovered/Resolved]
  - Bile duct stone [Unknown]

NARRATIVE: CASE EVENT DATE: 20160309
